FAERS Safety Report 23576009 (Version 1)
Quarter: 2024Q1

REPORT INFORMATION
  Report Type: Spontaneous
  Country: FR (occurrence: FR)
  Receive Date: 20240228
  Receipt Date: 20240228
  Transmission Date: 20240410
  Serious: Yes (Other)
  Sender: FDA-Public Use
  Company Number: None

PATIENT
  Age: 47 Year
  Sex: Female
  Weight: 60 kg

DRUGS (3)
  1. RIMEGEPANT [Suspect]
     Active Substance: RIMEGEPANT
     Indication: Migraine
     Dosage: 75 MG, (1 AT THE START OF THE CRISIS)
     Route: 048
     Dates: start: 20240106, end: 20240106
  2. RIMEGEPANT [Suspect]
     Active Substance: RIMEGEPANT
     Dosage: 75 MG, (1 AT THE START OF THE CRISIS)
     Route: 048
     Dates: start: 20240110, end: 20240110
  3. LATANOPROST [Concomitant]
     Active Substance: LATANOPROST
     Dosage: UNK

REACTIONS (1)
  - Peripheral ischaemia [Recovered/Resolved]

NARRATIVE: CASE EVENT DATE: 20240106
